FAERS Safety Report 9539932 (Version 1)
Quarter: 2013Q2

REPORT INFORMATION
  Report Type: Spontaneous
  Country: US (occurrence: None)
  Receive Date: 20130524
  Receipt Date: 20130524
  Transmission Date: 20140414
  Serious: No
  Sender: FDA-Public Use
  Company Number: PHHY2013US017489

PATIENT
  Age: 52 Year
  Sex: 0
  Weight: 68 kg

DRUGS (11)
  1. GILENYA (FINGOLIMOD) CAPSULE, 0.5MG [Suspect]
     Route: 048
     Dates: start: 20110725
  2. VAGIFEM (ESTRADIOL) TABLET [Concomitant]
  3. WELLBUTRIN (BUPROPION HYDROCHLORIDE) [Concomitant]
  4. ALPRAZOLAM (ALPRAZOLAM) [Concomitant]
  5. AMBIEN (ZOLPIDEM TARTRATE) TABLET [Concomitant]
  6. HYDROCODONE W/APAP (HYDROCODONE, PARACETAMOL) [Concomitant]
  7. COLACE [Concomitant]
  8. BENADRYL/00647601/ (CAMPHOR, DIPHENHYDRAMINE HYDROCHLORIDE, ZINC OXIDE) CAPSULE [Concomitant]
  9. IMODIUM A-D (LOPERAMIDE HYDROCHLORIDE) TABLET [Concomitant]
  10. ASA (ACETYLSALICYLIC ACID) [Concomitant]
  11. CYMBALTA (DULOXETINE HYDROCHLORIDE) [Concomitant]

REACTIONS (4)
  - Headache [None]
  - Oropharyngeal pain [None]
  - Fatigue [None]
  - Pain [None]
